FAERS Safety Report 13526376 (Version 1)
Quarter: 2017Q2

REPORT INFORMATION
  Report Type: Spontaneous
  Country: US (occurrence: US)
  Receive Date: 20170508
  Receipt Date: 20170508
  Transmission Date: 20170830
  Serious: Yes (Hospitalization)
  Sender: FDA-Public Use
  Company Number: None

PATIENT
  Sex: Female
  Weight: 119.2 kg

DRUGS (7)
  1. IODINE. [Concomitant]
     Active Substance: IODINE
  2. PREDNISONE. [Suspect]
     Active Substance: PREDNISONE
     Indication: HAEMOLYTIC ANAEMIA
     Dosage: ?          QUANTITY:1 TABLET(S);?
     Route: 048
  3. FOLIC ACID. [Concomitant]
     Active Substance: FOLIC ACID
  4. PROTONIX [Concomitant]
     Active Substance: PANTOPRAZOLE SODIUM
  5. CHEMO (CYCLO?0 [Concomitant]
  6. MULTIVITAMINS [Concomitant]
     Active Substance: VITAMINS
  7. ACETAMINOPHEN. [Concomitant]
     Active Substance: ACETAMINOPHEN

REACTIONS (16)
  - Amnesia [None]
  - Nerve injury [None]
  - Fibromyalgia [None]
  - Dysgeusia [None]
  - Rheumatoid arthritis [None]
  - Paraesthesia [None]
  - Fatigue [None]
  - Anxiety [None]
  - Cataract [None]
  - Blindness [None]
  - Increased appetite [None]
  - Oedema [None]
  - Blood glucose increased [None]
  - Blood pressure increased [None]
  - Dizziness [None]
  - Abdominal discomfort [None]
